FAERS Safety Report 4486037-5 (Version None)
Quarter: 2004Q4

REPORT INFORMATION
  Report Type: 
  Country: None (occurrence: None)
  Receive Date: 20041022
  Receipt Date: 20041012
  Transmission Date: 20050328
  Serious: Yes (Death, Hospitalization)
  Sender: FDA-Public Use
  Company Number: 04-10-1458

PATIENT
  Age: 56 Year
  Sex: Female
  Weight: 58 kg

DRUGS (2)
  1. FLUOXETINE [Suspect]
     Dosage: 20MG OD ORAL
     Route: 048
     Dates: start: 20040705
  2. THYROXINE SODIUM [Concomitant]

REACTIONS (5)
  - ARRHYTHMIA [None]
  - CERVICAL VERTEBRAL FRACTURE [None]
  - DIZZINESS [None]
  - FALL [None]
  - SKULL FRACTURE [None]
